FAERS Safety Report 5514902-6 (Version None)
Quarter: 2007Q4

REPORT INFORMATION
  Report Type: 
  Country: None (occurrence: None)
  Receive Date: 20071113
  Receipt Date: 20060926
  Transmission Date: 20080405
  Serious: No
  Sender: FDA-Public Use
  Company Number: A0621592A

PATIENT
  Age: 66 Year
  Sex: Female

DRUGS (2)
  1. COREG [Suspect]
     Indication: HYPERTENSION
     Dosage: 3.125MG PER DAY
     Route: 048
     Dates: start: 20060908
  2. NO CONCURRENT MEDICATION [Concomitant]

REACTIONS (3)
  - MUSCLE SPASMS [None]
  - MYALGIA [None]
  - PRURITUS [None]
